FAERS Safety Report 5456555-1 (Version None)
Quarter: 2007Q3

REPORT INFORMATION
  Report Type: 
  Country: None (occurrence: None)
  Receive Date: 20070918
  Receipt Date: 20070913
  Transmission Date: 20080115
  Serious: Yes (Hospitalization)
  Sender: FDA-Public Use
  Company Number: B0486577A

PATIENT
  Sex: Female

DRUGS (1)
  1. FLIXONASE [Suspect]
     Dosage: 2SPR AS REQUIRED
     Route: 045

REACTIONS (4)
  - HYPERSENSITIVITY [None]
  - NASOPHARYNGITIS [None]
  - PRURITUS [None]
  - RASH [None]
